FAERS Safety Report 10206800 (Version 1)
Quarter: 2014Q2

REPORT INFORMATION
  Report Type: Spontaneous
  Country: US (occurrence: None)
  Receive Date: 20140528
  Receipt Date: 20140528
  Transmission Date: 20141212
  Serious: Yes (Disabling, Other)
  Sender: FDA-Public Use
  Company Number: None

PATIENT
  Age: 63 Year
  Sex: Female
  Weight: 63.96 kg

DRUGS (1)
  1. GEODON [Suspect]
     Indication: BIPOLAR DISORDER
     Dosage: 80 MG 160 MG TWICE DAILY TAKEN BY MOUTH
     Route: 048

REACTIONS (3)
  - Feeling abnormal [None]
  - Decreased activity [None]
  - Paraesthesia [None]
